FAERS Safety Report 4837538-9 (Version None)
Quarter: 2005Q4

REPORT INFORMATION
  Report Type: 
  Country: None (occurrence: None)
  Receive Date: 20051128
  Receipt Date: 20051111
  Transmission Date: 20060501
  Serious: Yes (Other)
  Sender: FDA-Public Use
  Company Number: JP-SANOFI-SYNTHELABO-A01200507912

PATIENT
  Age: 67 Year
  Sex: Male

DRUGS (5)
  1. MYSLEE [Suspect]
     Indication: DRUG USE FOR UNKNOWN INDICATION
     Route: 048
     Dates: start: 20051110, end: 20051110
  2. ADALAT [Concomitant]
     Indication: DRUG USE FOR UNKNOWN INDICATION
     Route: 048
     Dates: start: 20051110, end: 20051110
  3. FLOMOX [Concomitant]
     Indication: DRUG USE FOR UNKNOWN INDICATION
     Route: 048
     Dates: start: 20051109, end: 20051111
  4. CRAVIT [Concomitant]
     Indication: DRUG USE FOR UNKNOWN INDICATION
     Route: 031
     Dates: start: 20051031, end: 20051111
  5. RINDERON [Concomitant]
     Indication: DRUG USE FOR UNKNOWN INDICATION
     Route: 031
     Dates: start: 20051111, end: 20051111

REACTIONS (2)
  - DELIRIUM [None]
  - MEMORY IMPAIRMENT [None]
